FAERS Safety Report 9764167 (Version 2)
Quarter: 2014Q1

REPORT INFORMATION
  Report Type: Report from Study
  Country: BR (occurrence: BR)
  Receive Date: 20131216
  Receipt Date: 20140307
  Transmission Date: 20141002
  Serious: Yes (Death, Hospitalization)
  Sender: FDA-Public Use
  Company Number: PHHY2013BR146591

PATIENT
  Age: 81 Year
  Sex: Female

DRUGS (1)
  1. ACLASTA [Suspect]
     Indication: OSTEOPOROSIS
     Dosage: 5 MG
     Route: 042
     Dates: start: 2012

REACTIONS (6)
  - Bone cancer [Fatal]
  - Breast cancer [Fatal]
  - Abasia [Fatal]
  - Pain in extremity [Fatal]
  - Lymphoma [Fatal]
  - Malaise [Unknown]
